FAERS Safety Report 8717355 (Version 4)
Quarter: 2013Q3

REPORT INFORMATION
  Report Type: Report from Study
  Country: DE (occurrence: DE)
  Receive Date: 20120810
  Receipt Date: 20130816
  Transmission Date: 20140515
  Serious: Yes (Other)
  Sender: FDA-Public Use
  Company Number: DE-SANOFI-AVENTIS-2012SA056866

PATIENT
  Age: 74 Year
  Sex: Female
  Weight: 70 kg

DRUGS (7)
  1. MULTAQ [Suspect]
     Indication: ATRIAL FIBRILLATION
     Route: 048
     Dates: start: 20120718, end: 20120806
  2. INDOMETACIN [Concomitant]
     Dosage: THREE TABLETS
     Route: 048
     Dates: start: 20120718, end: 20120719
  3. DIGITALIS [Concomitant]
     Indication: CARDIAC DISORDER
     Route: 048
     Dates: end: 201207
  4. OLMESARTAN [Concomitant]
  5. HYDROCHLOROTHIAZID [Concomitant]
  6. METOPROLOL SUCCINATE [Concomitant]
  7. PHENPROCOUMON [Concomitant]
     Dosage: ACC. TO INR

REACTIONS (6)
  - Renal failure acute [Recovered/Resolved]
  - Blood creatinine increased [Recovered/Resolved]
  - Glomerular filtration rate decreased [Recovered/Resolved]
  - Liver disorder [Recovered/Resolved]
  - Alanine aminotransferase increased [Recovered/Resolved]
  - Hyperuricaemia [Unknown]
